FAERS Safety Report 5349763-1 (Version None)
Quarter: 2007Q2

REPORT INFORMATION
  Report Type: 
  Country: None (occurrence: None)
  Receive Date: 20070508
  Receipt Date: 20060403
  Transmission Date: 20071010
  Serious: Yes (Hospitalization)
  Sender: FDA-Public Use
  Company Number: 232043K06USA

PATIENT
  Age: 35 Year
  Sex: Female
  Weight: 78.9259 kg

DRUGS (3)
  1. REBIF [Suspect]
     Indication: MULTIPLE SCLEROSIS
     Dosage: SEE IMAGE
     Route: 058
     Dates: start: 20060308, end: 20060401
  2. REBIF [Suspect]
     Indication: MULTIPLE SCLEROSIS
     Dosage: SEE IMAGE
     Route: 058
     Dates: start: 20060404
  3. LEXAPRO [Concomitant]

REACTIONS (8)
  - ANOREXIA [None]
  - COORDINATION ABNORMAL [None]
  - DIPLOPIA [None]
  - GAIT DISTURBANCE [None]
  - LETHARGY [None]
  - MULTIPLE SCLEROSIS [None]
  - NYSTAGMUS [None]
  - WEIGHT DECREASED [None]
